FAERS Safety Report 26111660 (Version 1)
Quarter: 2025Q4

REPORT INFORMATION
  Report Type: Report from Study
  Country: US (occurrence: US)
  Receive Date: 20251202
  Receipt Date: 20251202
  Transmission Date: 20260118
  Serious: Yes (Death)
  Sender: ROCHE
  Company Number: US-ROCHE-10000443336

PATIENT
  Age: 75 Year
  Sex: Female
  Weight: 108 kg

DRUGS (10)
  1. HEMLIBRA [Suspect]
     Active Substance: EMICIZUMAB-KXWH
     Indication: Coagulation factor deficiency
     Route: 058
     Dates: start: 20241204
  2. HEMLIBRA [Suspect]
     Active Substance: EMICIZUMAB-KXWH
     Indication: Hypoprothrombinaemia
     Route: 058
  3. HEMLIBRA [Suspect]
     Active Substance: EMICIZUMAB-KXWH
     Indication: Acquired haemophilia
  4. SOLU-MEDROL [Concomitant]
     Active Substance: METHYLPREDNISOLONE SODIUM SUCCINATE
  5. BISACODYL [Concomitant]
     Active Substance: BISACODYL
  6. CLONIDINE [Concomitant]
     Active Substance: CLONIDINE
  7. FAMOTIDINE [Concomitant]
     Active Substance: FAMOTIDINE
  8. FUROSEMIDE [Concomitant]
     Active Substance: FUROSEMIDE
  9. NYSTATIN [Concomitant]
     Active Substance: NYSTATIN
  10. TRUXIMA [Concomitant]
     Active Substance: RITUXIMAB-ABBS
     Indication: Acquired haemophilia
     Dosage: DATE OF TREATMENT: 19-NOV-2024; 27-NOV-2024; 04-DEC-2024; 11-DEC-2024
     Route: 042

REACTIONS (2)
  - Death [Fatal]
  - Off label use [Unknown]

NARRATIVE: CASE EVENT DATE: 20241221
